FAERS Safety Report 5114290-3 (Version None)
Quarter: 2006Q3

REPORT INFORMATION
  Report Type: 
  Country: None (occurrence: None)
  Receive Date: 20060925
  Receipt Date: 20060915
  Transmission Date: 20061208
  Serious: Yes (Other)
  Sender: FDA-Public Use
  Company Number: JP-ABBOTT-06P-087-0343942-00

PATIENT
  Age: 63 Year
  Sex: Female
  Weight: 58 kg

DRUGS (5)
  1. SEVOFRANE [Suspect]
     Indication: ANAESTHESIA
     Route: 055
  2. PROPOFOL [Suspect]
     Indication: ANAESTHESIA
     Route: 042
  3. NITROUS OXIDE W/ OXYGEN [Suspect]
     Indication: ANAESTHESIA
     Route: 055
  4. FENTANYL [Suspect]
     Indication: ANAESTHESIA
     Route: 042
  5. VECURONIUM BROMIDE [Concomitant]
     Indication: INDUCTION OF ANAESTHESIA

REACTIONS (5)
  - ARTERIOSPASM CORONARY [None]
  - ATRIOVENTRICULAR BLOCK THIRD DEGREE [None]
  - BLOOD PRESSURE DECREASED [None]
  - BRADYCARDIA [None]
  - ELECTROCARDIOGRAM QRS COMPLEX PROLONGED [None]
